FAERS Safety Report 10041543 (Version 1)
Quarter: 2014Q1

REPORT INFORMATION
  Report Type: Spontaneous
  Country: JP (occurrence: JP)
  Receive Date: 20140327
  Receipt Date: 20140327
  Transmission Date: 20141002
  Serious: Yes (Death)
  Sender: FDA-Public Use
  Company Number: JP-NOVOPROD-403569

PATIENT
  Age: 82 Year
  Sex: Male

DRUGS (5)
  1. NOVOSEVEN HI [Suspect]
     Indication: ACQUIRED HAEMOPHILIA
     Dosage: 40 MG, QD (5 MG/8 TIMES)
     Route: 042
     Dates: start: 20140304
  2. NOVOSEVEN HI [Suspect]
     Dosage: 30 MG, QD (5 MG/6 TIMES)
     Route: 042
     Dates: start: 20140310, end: 20140315
  3. SOL-MELCORT [Concomitant]
     Indication: ACQUIRED HAEMOPHILIA
     Dosage: 40 MG, QD
     Route: 042
     Dates: start: 20140228, end: 20140304
  4. PREDONINE                          /00016204/ [Concomitant]
     Indication: ACQUIRED HAEMOPHILIA
     Dosage: 50 MG, QD
     Route: 042
     Dates: start: 20140305, end: 20140315
  5. OMEPRAZOLE                         /00661202/ [Concomitant]
     Dosage: 30 MG, QD
     Route: 048
     Dates: start: 20140228, end: 20140315

REACTIONS (3)
  - Pneumonia [Fatal]
  - Hyperkalaemia [Fatal]
  - Sepsis [Fatal]
